FAERS Safety Report 5820281-7 (Version None)
Quarter: 2008Q3

REPORT INFORMATION
  Report Type: 
  Country: None (occurrence: None)
  Receive Date: 20080724
  Receipt Date: 20070530
  Transmission Date: 20090109
  Serious: No
  Sender: FDA-Public Use
  Company Number: A0653516A

PATIENT
  Age: 56 Year
  Sex: Female

DRUGS (5)
  1. AVANDIA [Suspect]
     Dosage: 4MG PER DAY
     Route: 048
     Dates: end: 20070512
  2. POTASSIUM CHLORIDE [Concomitant]
  3. GLYBURIDE AND METFORMIN HCL [Concomitant]
  4. ZOCOR [Concomitant]
  5. DIOVAN [Concomitant]

REACTIONS (4)
  - DYSPNOEA EXERTIONAL [None]
  - FATIGUE [None]
  - HEADACHE [None]
  - MUSCLE SPASMS [None]
